FAERS Safety Report 5381793-6 (Version None)
Quarter: 2007Q3

REPORT INFORMATION
  Report Type: 
  Country: None (occurrence: None)
  Receive Date: 20070705
  Receipt Date: 20070705
  Transmission Date: 20080115
  Serious: Yes (Other)
  Sender: FDA-Public Use
  Company Number: None

PATIENT
  Age: 70 Year
  Sex: Female
  Weight: 104.3273 kg

DRUGS (1)
  1. LAMICTAL [Suspect]
     Indication: COMPLEX PARTIAL SEIZURES
     Dosage: 50 MG. 1 X THREE DAYS PO;  60MG. 1 X EACH DAY PO
     Route: 048
     Dates: start: 20070608, end: 20070612

REACTIONS (3)
  - INSOMNIA [None]
  - RASH [None]
  - VASODILATATION [None]
